FAERS Safety Report 4565621-4 (Version None)
Quarter: 2005Q1

REPORT INFORMATION
  Report Type: 
  Country: None (occurrence: None)
  Receive Date: 20050125
  Receipt Date: 20050125
  Transmission Date: 20050727
  Serious: Yes (Hospitalization)
  Sender: FDA-Public Use
  Company Number: None

PATIENT
  Age: 75 Year
  Sex: Female
  Weight: 57 kg

DRUGS (1)
  1. REMICADE [Suspect]
     Indication: CROHN'S DISEASE
     Dosage: 300MG  Q2WEEKS INTRAVENOUS
     Route: 042
     Dates: start: 20040922, end: 20041006

REACTIONS (5)
  - ASTHENIA [None]
  - BACK PAIN [None]
  - EXTRADURAL ABSCESS [None]
  - OSTEOMYELITIS [None]
  - STAPHYLOCOCCAL INFECTION [None]
